FAERS Safety Report 19803632 (Version 1)
Quarter: 2021Q3

REPORT INFORMATION
  Report Type: Spontaneous
  Country: US (occurrence: US)
  Receive Date: 20210908
  Receipt Date: 20210908
  Transmission Date: 20211014
  Serious: No
  Sender: FDA-Public Use
  Company Number: US-LUPIN PHARMACEUTICALS INC.-2021-16362

PATIENT
  Age: 33 Year
  Sex: Male

DRUGS (5)
  1. FLUOXETINE [Suspect]
     Active Substance: FLUOXETINE HYDROCHLORIDE
     Indication: OBSESSIVE-COMPULSIVE DISORDER
     Dosage: 80 MILLIGRAM
     Route: 065
  2. PHENELZINE [Suspect]
     Active Substance: PHENELZINE
     Indication: OBSESSIVE-COMPULSIVE DISORDER
     Dosage: 15 MILLIGRAM, BID
     Route: 065
  3. ARIPIPRAZOLE. [Suspect]
     Active Substance: ARIPIPRAZOLE
     Indication: OBSESSIVE-COMPULSIVE DISORDER
     Dosage: 5 MILLIGRAM
     Route: 065
  4. PHENELZINE [Suspect]
     Active Substance: PHENELZINE
     Dosage: 90 MILLIGRAM, QD (ADMINISTERED IN TWO DIVIDED DOSES)
     Route: 065
  5. CLOMIPRAMINE [Suspect]
     Active Substance: CLOMIPRAMINE
     Indication: OBSESSIVE-COMPULSIVE DISORDER
     Dosage: 200 MILLIGRAM
     Route: 065

REACTIONS (4)
  - Diarrhoea [Recovered/Resolved]
  - Drug resistance [Unknown]
  - Off label use [Unknown]
  - Nausea [Recovered/Resolved]
